FAERS Safety Report 7238400-7 (Version None)
Quarter: 2011Q1

REPORT INFORMATION
  Report Type: 
  Country: None (occurrence: None)
  Receive Date: 20110121
  Receipt Date: 20110117
  Transmission Date: 20110831
  Serious: Yes (Other)
  Sender: FDA-Public Use
  Company Number: GB-PFIZER INC-2011011547

PATIENT
  Age: 13 Year
  Sex: Male

DRUGS (1)
  1. REFACTO [Suspect]

REACTIONS (1)
  - FACTOR VIII INHIBITION [None]
